FAERS Safety Report 17053854 (Version 1)
Quarter: 2019Q4

REPORT INFORMATION
  Report Type: Spontaneous
  Country: US (occurrence: US)
  Receive Date: 20191120
  Receipt Date: 20191120
  Transmission Date: 20200122
  Serious: Yes (Other)
  Sender: FDA-Public Use
  Company Number: US-TEVA-2019-US-1138637

PATIENT
  Age: 63 Year
  Sex: Male

DRUGS (1)
  1. AMOXICILLIN. [Suspect]
     Active Substance: AMOXICILLIN
     Indication: ALLERGY TEST
     Dosage: SINGLE DOSE ORAL CHALLENGE
     Route: 048

REACTIONS (8)
  - Influenza like illness [Recovered/Resolved]
  - Tryptase increased [Unknown]
  - Body temperature increased [Recovered/Resolved]
  - C-reactive protein increased [Unknown]
  - Type III immune complex mediated reaction [Recovered/Resolved]
  - Arthralgia [Recovered/Resolved]
  - Eosinophil count increased [Unknown]
  - Chills [Recovered/Resolved]
